FAERS Safety Report 11608359 (Version 1)
Quarter: 2015Q4

REPORT INFORMATION
  Report Type: Report from Study
  Country: US (occurrence: US)
  Receive Date: 20151007
  Receipt Date: 20151007
  Transmission Date: 20160304
  Serious: Yes (Other)
  Sender: FDA-Public Use
  Company Number: US-GILEAD-2015-0175389

PATIENT
  Age: 74 Year
  Sex: Male

DRUGS (2)
  1. IDELALISIB [Suspect]
     Active Substance: IDELALISIB
     Dosage: 150 MG, QD
     Route: 048
     Dates: start: 20150903
  2. IDELALISIB [Suspect]
     Active Substance: IDELALISIB
     Indication: B-CELL LYMPHOMA STAGE II
     Dosage: 150 MG, BID
     Route: 048
     Dates: start: 20150619, end: 20150831

REACTIONS (2)
  - Transurethral prostatectomy [Unknown]
  - Off label use [Unknown]

NARRATIVE: CASE EVENT DATE: 20150928
